FAERS Safety Report 19145793 (Version 3)
Quarter: 2021Q3

REPORT INFORMATION
  Report Type: Report from Study
  Country: GB (occurrence: GB)
  Receive Date: 20210416
  Receipt Date: 20210713
  Transmission Date: 20211014
  Serious: Yes (Hospitalization)
  Sender: FDA-Public Use
  Company Number: GB-REGENERON PHARMACEUTICALS, INC.-2021-33776

PATIENT

DRUGS (16)
  1. EYLEA [Suspect]
     Active Substance: AFLIBERCEPT
     Dosage: 50 MICROLITRE , ONCE
     Route: 031
     Dates: start: 20201012, end: 20201012
  2. EYLEA [Suspect]
     Active Substance: AFLIBERCEPT
     Dosage: 50 MICROLITER, ONCE, RIGHT EYE
     Route: 031
     Dates: start: 20210208, end: 20210208
  3. EYLEA [Suspect]
     Active Substance: AFLIBERCEPT
     Dosage: 50 MICROLITRE , ONCE
     Route: 031
     Dates: start: 20190919, end: 20190919
  4. EYLEA [Suspect]
     Active Substance: AFLIBERCEPT
     Dosage: 50 MICROLITRE , ONCE
     Route: 031
     Dates: start: 20191016, end: 20191016
  5. EYLEA [Suspect]
     Active Substance: AFLIBERCEPT
     Dosage: 50 MICROLITRE, ONCE
     Route: 031
     Dates: start: 20200622, end: 20200622
  6. NAPROXEN. [Concomitant]
     Active Substance: NAPROXEN
     Indication: GOUT
     Dosage: UNK
  7. AMLODIPINE [Concomitant]
     Active Substance: AMLODIPINE BESYLATE
     Indication: HYPERTENSION
     Dosage: UNK
  8. COVID?19 VACCINE NRVV AD (CHADOX1 NCOV?19) [Concomitant]
     Dosage: UNK, SECOND DOSE
     Dates: start: 20210403, end: 20210403
  9. EYLEA [Suspect]
     Active Substance: AFLIBERCEPT
     Dosage: 50 MICROLITRE , ONCE
     Route: 031
     Dates: start: 20200211, end: 20200211
  10. EYLEA [Suspect]
     Active Substance: AFLIBERCEPT
     Dosage: 50 MICROLITRE, ONCE
     Route: 031
     Dates: start: 20200817, end: 20200817
  11. EYLEA [Suspect]
     Active Substance: AFLIBERCEPT
     Dosage: 50 MICROLITRE , ONCE
     Route: 031
     Dates: start: 20201207, end: 20201207
  12. EYLEA [Suspect]
     Active Substance: AFLIBERCEPT
     Indication: NEOVASCULAR AGE-RELATED MACULAR DEGENERATION
     Dosage: 50 MICROLITRE ONCE
     Route: 031
     Dates: start: 20190820, end: 20190820
  13. EYLEA [Suspect]
     Active Substance: AFLIBERCEPT
     Dosage: 50 MICROLITRE , ONCE
     Route: 031
     Dates: start: 20191213, end: 20191213
  14. LANSOPRAZOLE. [Concomitant]
     Active Substance: LANSOPRAZOLE
     Indication: REFLUX GASTRITIS
     Dosage: UNK
  15. EYLEA [Suspect]
     Active Substance: AFLIBERCEPT
     Dosage: 50 MICROLITRE , ONCE
     Route: 031
     Dates: start: 20200409, end: 20200409
  16. COVID?19 VACCINE NRVV AD (CHADOX1 NCOV?19) [Concomitant]
     Indication: COVID-19 PROPHYLAXIS
     Dosage: UNK, FIRST DOSE
     Dates: start: 20210130, end: 20210130

REACTIONS (3)
  - Endophthalmitis [Recovered/Resolved]
  - Photophobia [Recovering/Resolving]
  - Uveitis [Recovered/Resolved]

NARRATIVE: CASE EVENT DATE: 20210211
